FAERS Safety Report 4556480-4 (Version None)
Quarter: 2005Q1

REPORT INFORMATION
  Report Type: 
  Country: None (occurrence: None)
  Receive Date: 20050114
  Receipt Date: 20050107
  Transmission Date: 20050727
  Serious: Yes (Life-Threatening, Hospitalization)
  Sender: FDA-Public Use
  Company Number: IBF20050002

PATIENT
  Age: 33 Year
  Sex: Female
  Weight: 55 kg

DRUGS (3)
  1. IBUPROFEN [Suspect]
     Dosage: PO
     Route: 048
  2. AMITRIPTYLINE [Suspect]
     Dosage: PO
     Route: 048
  3. TYLENOL [Suspect]
     Dosage: PO
     Route: 048

REACTIONS (10)
  - ACUTE RESPIRATORY DISTRESS SYNDROME [None]
  - CONVULSION [None]
  - ELECTROMECHANICAL DISSOCIATION [None]
  - HAEMOPHILUS INFECTION [None]
  - OVERDOSE [None]
  - PNEUMOTHORAX [None]
  - PYREXIA [None]
  - SEPSIS [None]
  - STREPTOCOCCAL INFECTION [None]
  - TACHYCARDIA [None]
